FAERS Safety Report 7457412-1 (Version None)
Quarter: 2011Q2

REPORT INFORMATION
  Report Type: 
  Country: None (occurrence: None)
  Receive Date: 20110504
  Receipt Date: 20110419
  Transmission Date: 20111010
  Serious: No
  Sender: FDA-Public Use
  Company Number: US-B.I. PHARMACEUTICALS,INC./RIDGEFIELD-2011-BP-03408BP

PATIENT
  Sex: Female

DRUGS (6)
  1. COMBIVENT [Suspect]
     Indication: DYSPNOEA
  2. ZOMIG [Concomitant]
  3. COMBIVENT [Suspect]
     Indication: BRONCHITIS
     Route: 055
     Dates: start: 20110131, end: 20110201
  4. THYROID TAB [Concomitant]
     Indication: HYPOTHYROIDISM
     Dosage: 120 MG
     Route: 048
  5. COMBIVENT [Suspect]
  6. EXCEDRIN (MIGRAINE) [Concomitant]

REACTIONS (2)
  - EPISTAXIS [None]
  - NASAL CONGESTION [None]
